FAERS Safety Report 10622898 (Version 1)
Quarter: 2014Q4

REPORT INFORMATION
  Report Type: Spontaneous
  Country: FR (occurrence: FR)
  Receive Date: 20141203
  Receipt Date: 20141203
  Transmission Date: 20150529
  Serious: Yes (Other)
  Sender: FDA-Public Use
  Company Number: FR-DSJP-DSE-2014-130551

PATIENT

DRUGS (2)
  1. REMICADE [Concomitant]
     Active Substance: INFLIXIMAB
     Indication: PSORIASIS
     Dosage: 400 MG, ONCE EVERY 1 MO
     Route: 048
     Dates: start: 201003, end: 20141115
  2. ALTEIS 40 MG [Suspect]
     Active Substance: OLMESARTAN MEDOXOMIL
     Indication: HYPERTENSION
     Dosage: 40 MG, QD
     Route: 048
     Dates: start: 20120127, end: 20140922

REACTIONS (3)
  - Weight decreased [Unknown]
  - Colitis microscopic [Unknown]
  - Diarrhoea [Unknown]

NARRATIVE: CASE EVENT DATE: 20140803
